FAERS Safety Report 6471767-6 (Version None)
Quarter: 2009Q4

REPORT INFORMATION
  Report Type: 
  Country: None (occurrence: None)
  Receive Date: 20091201
  Receipt Date: 20091116
  Transmission Date: 20100525
  Serious: Yes (Hospitalization)
  Sender: FDA-Public Use
  Company Number: PERC20090147

PATIENT
  Age: 74 Year
  Sex: Male
  Weight: 93.6 kg

DRUGS (13)
  1. PERCOCET [Suspect]
     Indication: PAIN
     Dosage: 5 MG/325 MG, Q4H, ORAL
     Route: 048
     Dates: start: 20090922, end: 20091002
  2. LEVODOPA CARBIDOPA INTESTINAL GEL (LEVODOPA, CARBIDOPA) [Suspect]
     Indication: PARKINSON'S DISEASE
  3. DILAUDID [Suspect]
     Dosage: 0.2 MG, QHS, INTRAVENOUS, 0.4 MG PRN AND 2 MG PRN, QHS, INTRAVENOUS
     Route: 042
     Dates: start: 20090921, end: 20090922
  4. DILAUDID [Suspect]
     Dosage: 0.2 MG, QHS, INTRAVENOUS, 0.4 MG PRN AND 2 MG PRN, QHS, INTRAVENOUS
     Route: 042
     Dates: start: 20090922, end: 20090922
  5. CLONAZEPAM [Concomitant]
  6. HALDOL (HALOPERIDOL) (HALOPERIDOL) [Concomitant]
  7. HEPARIN (HEPARIN) (INJECTION) (HEPARIN) [Concomitant]
  8. METHYLNALTREXONE (METHYLNALTREXONE BROMIDE) (METHYLNALTREXONE BROMIDE) [Concomitant]
  9. SERTRALINE [Concomitant]
  10. LORAZEPAM [Concomitant]
  11. SIMVASTATIN [Concomitant]
  12. MS CONTIN CR (MORPHINE SULFATE) (MORPHINE SULFATE) [Concomitant]
  13. DIPHENHYDRAMINE HYDROCHLORIDE [Concomitant]

REACTIONS (8)
  - ABDOMINAL PAIN [None]
  - CLOSTRIDIAL INFECTION [None]
  - CONSTIPATION [None]
  - DEHYDRATION [None]
  - ILEUS PARALYTIC [None]
  - INCONTINENCE [None]
  - PNEUMONIA [None]
  - VOMITING [None]
